FAERS Safety Report 23037509 (Version 1)
Quarter: 2023Q4

REPORT INFORMATION
  Report Type: Other
  Country: None (occurrence: US)
  Receive Date: 20231006
  Receipt Date: 20231006
  Transmission Date: 20240110
  Serious: Yes (Other)
  Sender: FDA-Public Use
  Company Number: US-Fagron Sterile Services-2146764

PATIENT
  Age: 82 Year
  Sex: Male

DRUGS (1)
  1. LIDOCAINE\PHENYLEPHRINE [Suspect]
     Active Substance: LIDOCAINE\PHENYLEPHRINE

REACTIONS (1)
  - Therapeutic product effect prolonged [None]
